FAERS Safety Report 17560856 (Version 1)
Quarter: 2020Q1

REPORT INFORMATION
  Report Type: Spontaneous
  Country: US (occurrence: US)
  Receive Date: 20200319
  Receipt Date: 20200319
  Transmission Date: 20200409
  Serious: No
  Sender: FDA-Public Use
  Company Number: None

PATIENT
  Age: 11 Year
  Sex: Male
  Weight: 40.5 kg

DRUGS (2)
  1. CLONIDINE ER [Concomitant]
     Active Substance: CLONIDINE
  2. CETIRIZINE [Suspect]
     Active Substance: CETIRIZINE HYDROCHLORIDE
     Indication: SEASONAL ALLERGY
     Dosage: ?          QUANTITY:1 TABLET(S);?
     Route: 048
     Dates: start: 20200307, end: 20200314

REACTIONS (6)
  - Aggression [None]
  - Distractibility [None]
  - Therapy cessation [None]
  - Agitation [None]
  - Crying [None]
  - Anger [None]

NARRATIVE: CASE EVENT DATE: 20200318
